FAERS Safety Report 10448316 (Version 2)
Quarter: 2014Q4

REPORT INFORMATION
  Report Type: Spontaneous
  Country: AU (occurrence: AU)
  Receive Date: 20140911
  Receipt Date: 20141117
  Transmission Date: 20150528
  Serious: Yes (Hospitalization)
  Sender: FDA-Public Use
  Company Number: AU-009507513-1409AUS002343

PATIENT
  Age: 38 Year
  Sex: Female

DRUGS (1)
  1. IMPLANON [Suspect]
     Active Substance: ETONOGESTREL
     Dosage: 1 ROD, SUPERFICIALLY
     Dates: start: 20140724

REACTIONS (5)
  - Implant site inflammation [Unknown]
  - Device deployment issue [Not Recovered/Not Resolved]
  - Implant site erythema [Unknown]
  - Implant site infection [Unknown]
  - Implant site irritation [Unknown]

NARRATIVE: CASE EVENT DATE: 2014
